FAERS Safety Report 8772810 (Version 2)
Quarter: 2012Q4

REPORT INFORMATION
  Report Type: 
  Country: JP (occurrence: JP)
  Receive Date: 20120907
  Receipt Date: 20120914
  Transmission Date: 20130627
  Serious: Yes (Other)
  Sender: FDA-Public Use
  Company Number: JP-PFIZER INC-2012218076

PATIENT
  Age: 63 Year
  Sex: Female

DRUGS (4)
  1. MEDROL [Suspect]
     Indication: RHEUMATOID ARTHRITIS
     Dosage: UNK
     Route: 048
     Dates: start: 20110901, end: 20120905
  2. CONIEL [Concomitant]
     Indication: HYPERTENSION
     Route: 048
  3. ACTONEL [Concomitant]
     Indication: OSTEOPOROSIS
     Route: 048
  4. FAMOSTAGINE [Concomitant]
     Indication: GASTRITIS
     Route: 048

REACTIONS (1)
  - Interstitial lung disease [Recovering/Resolving]
